FAERS Safety Report 4943027-3 (Version None)
Quarter: 2006Q1

REPORT INFORMATION
  Report Type: 
  Country: None (occurrence: None)
  Receive Date: 20060314
  Receipt Date: 20040810
  Transmission Date: 20060701
  Serious: Yes (Other)
  Sender: FDA-Public Use
  Company Number: PL-SANOFI-SYNTHELABO-D01200403

PATIENT
  Age: 48 Year
  Sex: Male
  Weight: 85 kg

DRUGS (8)
  1. FONDAPARINUX [Suspect]
     Indication: ACUTE CORONARY SYNDROME
     Dosage: 2.5MG PER DAY
     Route: 058
     Dates: start: 20040805, end: 20040808
  2. ASPIRIN [Concomitant]
  3. CAPTOPRIL [Concomitant]
  4. CLOPIDOGREL [Concomitant]
  5. METOPROLOL [Concomitant]
  6. SIMVASTATIN [Concomitant]
  7. TICLOPIDINE HCL [Concomitant]
  8. UNFRACTIONATED HEPARIN [Concomitant]

REACTIONS (2)
  - CATHETER RELATED COMPLICATION [None]
  - RETINAL ARTERY EMBOLISM [None]
